FAERS Safety Report 10736097 (Version 1)
Quarter: 2015Q1

REPORT INFORMATION
  Report Type: Spontaneous
  Country: US (occurrence: US)
  Receive Date: 20150126
  Receipt Date: 20150126
  Transmission Date: 20150721
  Serious: No
  Sender: FDA-Public Use
  Company Number: US-TARO-2014P1000529

PATIENT
  Age: 72 Year
  Sex: Female
  Weight: 64.41 kg

DRUGS (10)
  1. MAGNESIUM [Concomitant]
     Active Substance: MAGNESIUM
  2. BIOTIN [Concomitant]
     Active Substance: BIOTIN
  3. BABY ASPIRIN [Concomitant]
     Active Substance: ASPIRIN
  4. FISH OIL [Concomitant]
     Active Substance: FISH OIL
  5. VITAMIN B COMPLEX [Concomitant]
     Active Substance: CYANOCOBALAMIN\DEXPANTHENOL\NIACINAMIDE\PYRIDOXINE HYDROCHLORIDE\RIBOFLAVIN 5^-PHOSPHATE SODIUM\THIAMINE HYDROCHLORIDE\VITAMIN B COMPLEX
  6. BETAMETHASONE DIPROPIONATE OINTMENT (ACTAVIS) [Suspect]
     Active Substance: BETAMETHASONE DIPROPIONATE
     Indication: SEBORRHOEIC DERMATITIS
     Route: 061
     Dates: start: 20130923, end: 201401
  7. BETAMETHASONE DIPROPIONATE LOTION (FOUGERA) [Suspect]
     Active Substance: BETAMETHASONE DIPROPIONATE
     Indication: SEBORRHOEIC DERMATITIS
     Route: 061
     Dates: start: 20130923
  8. CALCIUM [Concomitant]
     Active Substance: CALCIUM
  9. MULTIVITAMIN [Concomitant]
     Active Substance: VITAMINS
  10. BETAMETHASONE DIPROPIONATE CREAM USP 0.05% (AUGMENTED) [Suspect]
     Active Substance: BETAMETHASONE DIPROPIONATE
     Indication: SEBORRHOEIC DERMATITIS
     Dosage: BID
     Route: 061
     Dates: start: 20140106, end: 20140122

REACTIONS (4)
  - Hyperhidrosis [Recovered/Resolved]
  - Pruritus generalised [Recovered/Resolved]
  - Feeling hot [Recovered/Resolved]
  - Application site pain [Not Recovered/Not Resolved]

NARRATIVE: CASE EVENT DATE: 201309
